FAERS Safety Report 6425463-1 (Version None)
Quarter: 2009Q4

REPORT INFORMATION
  Report Type: 
  Country: None (occurrence: None)
  Receive Date: 20091103
  Receipt Date: 20091022
  Transmission Date: 20100525
  Serious: Yes (Other)
  Sender: FDA-Public Use
  Company Number: US-PFIZER INC-2009287097

PATIENT
  Sex: Female
  Weight: 71.202 kg

DRUGS (9)
  1. LYRICA [Suspect]
     Indication: FIBROMYALGIA
     Dosage: 225 MG, 2X/DAY
     Route: 048
     Dates: start: 20090227, end: 20090804
  2. LYRICA [Suspect]
     Dosage: 75 MG, 2X/DAY
     Route: 048
     Dates: start: 20090220, end: 20090223
  3. LYRICA [Suspect]
     Dosage: 150 MG, 2X/DAY
     Route: 048
     Dates: start: 20090224, end: 20090226
  4. INVESTIGATIONAL DRUG [Suspect]
     Indication: FIBROMYALGIA
     Dosage: UNK
     Route: 048
     Dates: start: 20090521, end: 20090804
  5. INVESTIGATIONAL DRUG [Suspect]
     Dosage: UNK
     Route: 048
     Dates: start: 20090514, end: 20090514
  6. INVESTIGATIONAL DRUG [Suspect]
     Dosage: UNK
     Route: 048
     Dates: start: 20090515, end: 20090516
  7. INVESTIGATIONAL DRUG [Suspect]
     Dosage: UNK
     Route: 048
     Dates: start: 20090517, end: 20090520
  8. MOTRIN [Concomitant]
     Indication: MYALGIA
     Dosage: 2 DF, (AS REQUIRED)
     Route: 048
     Dates: start: 20010201
  9. TYLENOL [Concomitant]
     Indication: INSOMNIA
     Dosage: 1 DF, (AS REQUIRED)
     Route: 048
     Dates: start: 20080401

REACTIONS (1)
  - HYPERTENSION [None]
